FAERS Safety Report 13801231 (Version 5)
Quarter: 2017Q3

REPORT INFORMATION
  Report Type: Report from Study
  Country: DE (occurrence: DE)
  Receive Date: 20170727
  Receipt Date: 20170925
  Transmission Date: 20171127
  Serious: Yes (Hospitalization, Other)
  Sender: FDA-Public Use
  Company Number: PHHY2014DE125976

PATIENT
  Sex: Female
  Weight: 109 kg

DRUGS (35)
  1. JAKAVI [Suspect]
     Active Substance: RUXOLITINIB
     Dosage: 15 MG, BID (2 DF PER DAY)
     Route: 048
     Dates: start: 20150203, end: 20150517
  2. JAKAVI [Suspect]
     Active Substance: RUXOLITINIB
     Dosage: 30 MG, (1 DF A 10 MG, 1 DF A 20 MG)
     Route: 048
     Dates: start: 201601, end: 20160121
  3. JAKAVI [Suspect]
     Active Substance: RUXOLITINIB
     Dosage: 20 MG, BID (2 DF PER DAY)
     Route: 048
     Dates: start: 20160829, end: 20160929
  4. PANTOPRAZOLE [Concomitant]
     Active Substance: PANTOPRAZOLE
     Indication: PRODUCT USED FOR UNKNOWN INDICATION
     Dosage: 40 MG, QD
     Route: 065
     Dates: start: 20140821, end: 20150915
  5. DEKRISTOL [Concomitant]
     Active Substance: CHOLECALCIFEROL
     Indication: VITAMIN SUPPLEMENTATION
     Dosage: UNK UNK, QW (ONCE PER WEEK)
     Route: 065
     Dates: start: 20140821, end: 20150915
  6. JAKAVI [Suspect]
     Active Substance: RUXOLITINIB
     Dosage: 20 MG, BID (2 DF PER DAY)
     Route: 048
     Dates: start: 20150518, end: 20150730
  7. JAKAVI [Suspect]
     Active Substance: RUXOLITINIB
     Dosage: 15 MG, BID (2 DF PER DAY)
     Route: 048
     Dates: start: 20150731
  8. ACICLOVIR [Concomitant]
     Active Substance: ACYCLOVIR
     Indication: PROPHYLAXIS
     Dosage: 1600 MG, UNK
     Route: 065
     Dates: start: 20170601
  9. SYREA [Concomitant]
     Active Substance: HYDROXYUREA
     Indication: MYELOFIBROSIS
     Dosage: 1500 MG, UNK
     Route: 065
     Dates: start: 20170112, end: 20170530
  10. JAKAVI [Suspect]
     Active Substance: RUXOLITINIB
     Dosage: 20 MG, BID (2 DF PER DAY)
     Route: 048
     Dates: start: 20160426, end: 20160529
  11. JAKAVI [Suspect]
     Active Substance: RUXOLITINIB
     Dosage: 35 MG (1 DF A 15 MG, 1 DF A 20 MG)
     Route: 048
     Dates: start: 20160530, end: 20160707
  12. JAKAVI [Suspect]
     Active Substance: RUXOLITINIB
     Dosage: 15 MG, BID (2 DF PER DAY)
     Route: 048
     Dates: start: 20160708, end: 20160828
  13. METOPROLOL. [Suspect]
     Active Substance: METOPROLOL
     Indication: HYPERTENSION
     Dosage: 47.5 MG, QD
     Route: 065
     Dates: start: 20140625, end: 20161213
  14. PAROXETIN [Concomitant]
     Active Substance: PAROXETINE HYDROCHLORIDE
     Dosage: 20 MG, QD
     Route: 065
     Dates: start: 20150915
  15. VITAMIN D [Concomitant]
     Active Substance: CHOLECALCIFEROL
     Indication: PROPHYLAXIS
     Dosage: UNK
     Route: 065
     Dates: start: 20160815
  16. JAKAVI [Suspect]
     Active Substance: RUXOLITINIB
     Dosage: 30 MG, QD
     Route: 048
     Dates: start: 20160930, end: 20170127
  17. PAROXETIN [Concomitant]
     Active Substance: PAROXETINE HYDROCHLORIDE
     Indication: DEPRESSION
     Dosage: 25 MG, QD
     Route: 065
     Dates: start: 1990, end: 20150915
  18. JAKAVI [Suspect]
     Active Substance: RUXOLITINIB
     Dosage: 15 MG, QD
     Route: 048
     Dates: start: 20150119, end: 20150202
  19. JAKAVI [Suspect]
     Active Substance: RUXOLITINIB
     Dosage: 40 MG, QD
     Route: 048
     Dates: start: 20170127, end: 20170530
  20. RAMIPRIL. [Concomitant]
     Active Substance: RAMIPRIL
     Indication: HYPERTENSION
     Dosage: 10 MG, QD
     Route: 065
     Dates: start: 20140625, end: 20150915
  21. VALSARTAN. [Concomitant]
     Active Substance: VALSARTAN
     Indication: HYPERTENSION
     Dosage: 320 MG, UNK
     Route: 065
     Dates: start: 20160405
  22. PANTOZOL [Concomitant]
     Active Substance: PANTOPRAZOLE SODIUM
     Indication: PROPHYLAXIS AGAINST GASTROINTESTINAL ULCER
     Dosage: 40 MG, UNK
     Route: 065
     Dates: start: 20170627
  23. BISOPROLOL [Concomitant]
     Active Substance: BISOPROLOL
     Indication: HYPERTENSION
     Dosage: 10 MG, UNK
     Route: 065
     Dates: start: 20161213
  24. COTRIM [Concomitant]
     Active Substance: SULFAMETHOXAZOLE\TRIMETHOPRIM
     Indication: PROPHYLAXIS
     Dosage: 160 MG, QW3 (3 TIMES PER WEEK)
     Route: 065
     Dates: start: 20170601
  25. EXFORGE HCT [Concomitant]
     Active Substance: AMLODIPINE BESYLATE\HYDROCHLOROTHIAZIDE\VALSARTAN
     Indication: HYPERTENSION
     Dosage: 5/160/12.5 MG, QD
     Route: 065
     Dates: start: 20150116, end: 20160405
  26. AMLODIPINE [Concomitant]
     Active Substance: AMLODIPINE BESYLATE
     Indication: HYPERTENSION
     Dosage: 10 MG, UNK
     Route: 065
     Dates: start: 20160410
  27. URSOFALK [Concomitant]
     Active Substance: URSODIOL
     Indication: PROPHYLAXIS
     Dosage: 1500 MG, UNK
     Route: 065
     Dates: start: 20170601
  28. KLACID [Concomitant]
     Active Substance: CLARITHROMYCIN
     Indication: PROPHYLAXIS
     Dosage: 500 MG, UNK
     Route: 065
     Dates: start: 20170601
  29. JAKAVI [Suspect]
     Active Substance: RUXOLITINIB
     Indication: PRIMARY MYELOFIBROSIS
     Dosage: 15 MG, QD
     Route: 048
     Dates: start: 20140826, end: 20150103
  30. JAKAVI [Suspect]
     Active Substance: RUXOLITINIB
     Dosage: 7.5 MG, QD
     Route: 048
     Dates: start: 20150106, end: 20150118
  31. JAKAVI [Suspect]
     Active Substance: RUXOLITINIB
     Dosage: 15 MG, BID (2 DF PER DAY)
     Route: 048
     Dates: start: 20160122, end: 20160425
  32. XARELTO [Concomitant]
     Active Substance: RIVAROXABAN
     Indication: ATRIAL FIBRILLATION
     Dosage: 20 MG, QD
     Route: 065
     Dates: start: 20140625
  33. IDEOS [Concomitant]
     Active Substance: CALCIUM CARBONATE\CHOLECALCIFEROL
     Indication: STEROID THERAPY
     Dosage: 1 DF, BID
     Route: 065
     Dates: start: 20170601
  34. OMEPRAZOLE. [Concomitant]
     Active Substance: OMEPRAZOLE
     Indication: PROPHYLAXIS AGAINST GASTROINTESTINAL ULCER
     Dosage: 20 UNK, UNK
     Route: 065
     Dates: start: 20160915, end: 20170627
  35. NOXAFIL [Concomitant]
     Active Substance: POSACONAZOLE
     Indication: ANTIFUNGAL PROPHYLAXIS
     Dosage: 300 MG, UNK
     Route: 065
     Dates: start: 20170601

REACTIONS (12)
  - Tachyarrhythmia [Recovered/Resolved]
  - Nausea [Unknown]
  - C-reactive protein increased [Unknown]
  - Dyspnoea [Recovered/Resolved]
  - Abdominal pain [Recovered/Resolved]
  - Blood lactate dehydrogenase increased [Unknown]
  - Dyspnoea [Recovered/Resolved]
  - Atrial fibrillation [Recovered/Resolved]
  - Atrial flutter [Recovering/Resolving]
  - Arrhythmia [Recovered/Resolved]
  - Primary myelofibrosis [Unknown]
  - Vomiting [Unknown]

NARRATIVE: CASE EVENT DATE: 20140915
